FAERS Safety Report 8816984 (Version 1)
Quarter: 2012Q4

REPORT INFORMATION
  Report Type: Spontaneous
  Country: US (occurrence: None)
  Receive Date: 20121003
  Receipt Date: 20121003
  Transmission Date: 20130627
  Serious: Yes (Hospitalization)
  Sender: FDA-Public Use
  Company Number: None

PATIENT
  Age: 72 Year
  Sex: Male
  Weight: 79.6 kg

DRUGS (2)
  1. EVEROLIMUS [Suspect]
     Indication: PROSTATE CANCER
     Route: 048
     Dates: start: 20110513, end: 20120926
  2. CARBOPLATIN [Suspect]
     Indication: PROSTATE CANCER
     Dosage: every 4 weeks
     Route: 042
     Dates: start: 20110513, end: 20120906

REACTIONS (8)
  - Fall [None]
  - Asthenia [None]
  - Palpitations [None]
  - Blood sodium abnormal [None]
  - Hypokalaemia [None]
  - Renal failure acute [None]
  - Anaemia [None]
  - Thrombocytopenia [None]
